FAERS Safety Report 9861961 (Version 3)
Quarter: 2014Q2

REPORT INFORMATION
  Report Type: Spontaneous
  Country: US (occurrence: US)
  Receive Date: 20140203
  Receipt Date: 20140417
  Transmission Date: 20141212
  Serious: Yes (Hospitalization)
  Sender: FDA-Public Use
  Company Number: US-GLENMARK GENERICS INC.-2013GMK007280

PATIENT
  Age: 75 Year
  Sex: Female
  Weight: 120.64 kg

DRUGS (3)
  1. VERAPAMIL [Suspect]
     Indication: BLOOD PRESSURE ABNORMAL
     Dosage: 1 DF, OD
     Route: 048
     Dates: start: 201308, end: 20131208
  2. WARFARIN [Concomitant]
     Indication: ANTICOAGULANT THERAPY
     Dosage: 1 DF, OD
     Route: 048
  3. LASIX                              /00032601/ [Concomitant]
     Indication: PRODUCT USED FOR UNKNOWN INDICATION
     Dosage: UNK
     Route: 048

REACTIONS (7)
  - Atrial fibrillation [Unknown]
  - Cardiac failure congestive [Unknown]
  - Wheezing [Unknown]
  - Pulmonary oedema [Unknown]
  - Dyspnoea [Unknown]
  - Asthenia [Unknown]
  - Flushing [Unknown]
